FAERS Safety Report 14897773 (Version 2)
Quarter: 2019Q1

REPORT INFORMATION
  Report Type: Spontaneous
  Country: NL (occurrence: NL)
  Receive Date: 20180515
  Receipt Date: 20190223
  Transmission Date: 20190417
  Serious: Yes (Disabling)
  Sender: FDA-Public Use
  Company Number: NL-ROCHE-2123731

PATIENT
  Age: 57 Year
  Sex: Female
  Weight: 104 kg

DRUGS (8)
  1. VITAMINE B12 ROCHE [Concomitant]
     Dosage: 1X PER MAAND
     Route: 065
  2. METFORMIN [Concomitant]
     Active Substance: METFORMIN HYDROCHLORIDE
     Route: 065
  3. NEBIVOLOL. [Concomitant]
     Active Substance: NEBIVOLOL
     Route: 065
  4. SERETIDE [Concomitant]
     Active Substance: FLUTICASONE PROPIONATE\SALMETEROL XINAFOATE
     Dosage: 25/250 SALMETEROL XINAFOATE/FLUTICASONE PROPIONATE
     Route: 065
  5. D-CURA [Concomitant]
     Route: 065
  6. RITUXIMAB. [Suspect]
     Active Substance: RITUXIMAB
     Indication: AUTOIMMUNE HAEMOLYTIC ANAEMIA
     Dosage: 1 MG/MG (MILLIGRAM PER MILLIGRAM)
     Route: 042
     Dates: start: 20160201
  7. PREDNISON [Concomitant]
     Active Substance: PREDNISONE
     Route: 065
  8. MAGNESIUM CITRATE. [Concomitant]
     Active Substance: MAGNESIUM CITRATE
     Route: 065

REACTIONS (7)
  - Depressed mood [Unknown]
  - Fatigue [Recovered/Resolved with Sequelae]
  - Arthralgia [Recovered/Resolved with Sequelae]
  - Dyspnoea [Recovered/Resolved]
  - Myalgia [Recovered/Resolved with Sequelae]
  - Palpitations [Recovered/Resolved]
  - Bone pain [Recovered/Resolved with Sequelae]

NARRATIVE: CASE EVENT DATE: 20160201
